FAERS Safety Report 8352990-2 (Version None)
Quarter: 2012Q2

REPORT INFORMATION
  Report Type: 
  Country: None (occurrence: None)
  Receive Date: 20120511
  Receipt Date: 20120502
  Transmission Date: 20120825
  Serious: Yes (Hospitalization, Other)
  Sender: FDA-Public Use
  Company Number: DK-NOVOPROD-338819

PATIENT
  Age: 47 Year
  Sex: Female
  Weight: 60 kg

DRUGS (6)
  1. BRICANYL [Concomitant]
     Indication: ASTHMA
  2. FLUTICASONE PROPIONATE/SALMETEROL [Concomitant]
     Indication: ASTHMA
  3. LANSOPRAZOLE [Concomitant]
     Indication: GASTRIC PH DECREASED
  4. GESTODENE AND ETHINYL ESTRADIOL [Concomitant]
  5. VICTOZA [Suspect]
     Indication: TYPE 2 DIABETES MELLITUS
     Dosage: UNK UNK, QD
     Route: 058
     Dates: start: 20091101
  6. METFORMIN HCL [Concomitant]
     Indication: TYPE 2 DIABETES MELLITUS

REACTIONS (3)
  - FOOT FRACTURE [None]
  - LIGAMENT SPRAIN [None]
  - LOSS OF CONSCIOUSNESS [None]
